FAERS Safety Report 5499036-1 (Version None)
Quarter: 2007Q4

REPORT INFORMATION
  Report Type: 
  Country: None (occurrence: None)
  Receive Date: 20071026
  Receipt Date: 20070521
  Transmission Date: 20080405
  Serious: No
  Sender: FDA-Public Use
  Company Number: A0652147A

PATIENT
  Sex: Male

DRUGS (5)
  1. ADVAIR DISKUS 100/50 [Suspect]
     Indication: ASTHMA
     Route: 055
     Dates: start: 20070518
  2. LISINOPRIL [Concomitant]
  3. ZETIA [Concomitant]
  4. CLARITIN [Concomitant]
  5. METFORMIN [Concomitant]

REACTIONS (6)
  - BLOOD PRESSURE INCREASED [None]
  - CHEST PAIN [None]
  - FEELING HOT [None]
  - HEART RATE DECREASED [None]
  - MYALGIA [None]
  - NERVOUSNESS [None]
